FAERS Safety Report 15982801 (Version 1)
Quarter: 2019Q1

REPORT INFORMATION
  Report Type: Spontaneous
  Country: MX (occurrence: MX)
  Receive Date: 20190219
  Receipt Date: 20190219
  Transmission Date: 20190418
  Serious: Yes (Hospitalization, Other)
  Sender: FDA-Public Use
  Company Number: MX-BIOMARINAP-MX-2019-122030

PATIENT
  Age: 6 Year
  Sex: Female
  Weight: 13.5 kg

DRUGS (1)
  1. ALDURAZYME [Suspect]
     Active Substance: LARONIDASE
     Indication: MUCOPOLYSACCHARIDOSIS I
     Dosage: UNK, QW
     Route: 041

REACTIONS (3)
  - Pneumonia [Recovering/Resolving]
  - Pyrexia [Recovered/Resolved]
  - Asthmatic crisis [Recovering/Resolving]

NARRATIVE: CASE EVENT DATE: 20190119
